FAERS Safety Report 16743111 (Version 5)
Quarter: 2019Q4

REPORT INFORMATION
  Report Type: Spontaneous
  Country: ES (occurrence: ES)
  Receive Date: 20190827
  Receipt Date: 20191104
  Transmission Date: 20200122
  Serious: Yes (Life-Threatening, Hospitalization)
  Sender: FDA-Public Use
  Company Number: ES-SUN PHARMACEUTICAL INDUSTRIES LTD-2019RR-218724

PATIENT
  Age: 78 Year
  Sex: Female
  Weight: 63 kg

DRUGS (7)
  1. LETROZOLE. [Suspect]
     Active Substance: LETROZOLE
     Dosage: 1 WEEKS OF THERAPY 1 WEEK REST
     Route: 065
     Dates: start: 20190329
  2. KISQALI [Suspect]
     Active Substance: RIBOCICLIB
     Indication: INVASIVE LOBULAR BREAST CARCINOMA
  3. LETROZOLE. [Suspect]
     Active Substance: LETROZOLE
     Indication: BREAST CANCER
     Dosage: 3 WEEKS OF THERAPY 1 WEEK REST
     Route: 065
     Dates: start: 201811, end: 20190307
  4. KISQALI [Suspect]
     Active Substance: RIBOCICLIB
     Indication: BREAST CANCER
     Dosage: 3 WEEKS OF THERAPY, 1 WEEK REST
     Route: 065
     Dates: start: 201811
  5. KISQALI [Suspect]
     Active Substance: RIBOCICLIB
     Indication: BREAST CANCER
     Dosage: 600 MILLIGRAM, QD(CYCLICALLY 21 DAYSON/ 7 DAYS OFF
     Route: 065
     Dates: start: 20181120, end: 20190306
  6. L-THYROXINE [Concomitant]
     Active Substance: LEVOTHYROXINE
     Indication: PRODUCT USED FOR UNKNOWN INDICATION
     Route: 065
  7. KISQALI [Suspect]
     Active Substance: RIBOCICLIB
     Indication: INVASIVE LOBULAR BREAST CARCINOMA

REACTIONS (35)
  - Pancytopenia [Unknown]
  - Prerenal failure [Recovering/Resolving]
  - Toxic epidermal necrolysis [Recovering/Resolving]
  - Hypokalaemia [Unknown]
  - Back pain [Unknown]
  - Hypoalbuminaemia [Unknown]
  - Spondylolisthesis [Unknown]
  - Dermatitis bullous [Unknown]
  - Lymphadenopathy [Unknown]
  - Neutropenia [Unknown]
  - Oral candidiasis [Unknown]
  - Electrocardiogram abnormal [Unknown]
  - Skin haemorrhage [Unknown]
  - Stevens-Johnson syndrome [Recovering/Resolving]
  - Leukopenia [Unknown]
  - Staphylococcal bacteraemia [Unknown]
  - Superinfection [Unknown]
  - Pain [Unknown]
  - Hypertension [Unknown]
  - Blood lactate dehydrogenase increased [Unknown]
  - Lymphopenia [Unknown]
  - Fluid overload [Unknown]
  - Osteoarthritis [Unknown]
  - Malnutrition [Unknown]
  - Temperature regulation disorder [Unknown]
  - Erythema multiforme [Unknown]
  - Vulvovaginal candidiasis [Unknown]
  - Primary hypothyroidism [Unknown]
  - Oedema [Unknown]
  - Vitamin D deficiency [Unknown]
  - Psychomotor disadaptation syndrome [Unknown]
  - Oesophageal candidiasis [Unknown]
  - Dysphagia [Unknown]
  - Rash [Unknown]
  - Anaemia [Recovering/Resolving]

NARRATIVE: CASE EVENT DATE: 20190208
